FAERS Safety Report 25747386 (Version 2)
Quarter: 2025Q4

REPORT INFORMATION
  Report Type: Spontaneous
  Country: US (occurrence: US)
  Receive Date: 20250901
  Receipt Date: 20251003
  Transmission Date: 20260118
  Serious: Yes (Hospitalization, Other)
  Sender: MERCK SHARP & DOHME LLC
  Company Number: US-009507513-2324149

PATIENT
  Sex: Female
  Weight: 49.44 kg

DRUGS (13)
  1. SOTATERCEPT [Suspect]
     Active Substance: SOTATERCEPT
     Indication: Pulmonary arterial hypertension
     Dosage: 4 DOSES (0.7 MG/KG) 75 DAYS
     Route: 058
     Dates: start: 20241105
  2. SOTATERCEPT [Suspect]
     Active Substance: SOTATERCEPT
  3. SOTATERCEPT [Suspect]
     Active Substance: SOTATERCEPT
  4. SOTATERCEPT [Suspect]
     Active Substance: SOTATERCEPT
  5. TREPROSTINIL [Concomitant]
     Active Substance: TREPROSTINIL
     Route: 042
  6. MACITENTAN [Concomitant]
     Active Substance: MACITENTAN
     Dosage: 10 MG (1 TABLET) DAILY
     Route: 048
  7. ADCIRCA [Concomitant]
     Active Substance: TADALAFIL
     Dosage: 40 MG TOTAL (2 TABLETS) DAILY
     Route: 048
  8. PROAMATINE [Concomitant]
     Active Substance: MIDODRINE HYDROCHLORIDE
     Dosage: TIME INTERVAL: AS NECESSARY: 1 TABLET (10 MG TOTAL) AS NEEDED (IF SBP LESS THAN 90)
     Route: 048
  9. DELTASONE [Concomitant]
     Active Substance: PREDNISONE
     Indication: Systemic lupus erythematosus
     Dosage: 3 TABLETS (7.5 MG TOTAL) DAILY
     Route: 048
  10. ATROVENT [Concomitant]
     Active Substance: IPRATROPIUM BROMIDE
     Indication: Dyspnoea
     Dosage: TIME INTERVAL: 0.33333333 DAYS: 2.5 ML (0.5 MG TOTAL) BY NEBULIZATION, 3 TIMES A DAY
  11. IRON [Concomitant]
     Active Substance: IRON
     Dosage: TIME INTERVAL: 0.33333333 DAYS
  12. LASIX [Concomitant]
     Active Substance: FUROSEMIDE
     Dosage: 40 MG (1 TABLET), DAILY
     Route: 048
  13. VELETRI [Concomitant]
     Active Substance: EPOPROSTENOL
     Dosage: 13 NG/KG/MIN, CASETTE CONCENTRATION: 1.5 MG/100 ML, INFUSION RATE: 3 ML PER HOUR

REACTIONS (12)
  - Pulmonary arterial hypertension [Unknown]
  - Pericardial effusion [Recovering/Resolving]
  - Body temperature abnormal [Unknown]
  - Chronic respiratory failure [Unknown]
  - Gastrooesophageal reflux disease [Unknown]
  - Left ventricular hypertrophy [Unknown]
  - Acute right ventricular failure [Unknown]
  - Gastrooesophageal reflux disease [Unknown]
  - Abdominal discomfort [Unknown]
  - Diarrhoea [Recovering/Resolving]
  - Dyspnoea [Unknown]
  - Therapeutic product effect incomplete [Unknown]

NARRATIVE: CASE EVENT DATE: 20250101
